FAERS Safety Report 6021574-3 (Version None)
Quarter: 2008Q4

REPORT INFORMATION
  Report Type: 
  Country: None (occurrence: None)
  Receive Date: 20081229
  Receipt Date: 20081223
  Transmission Date: 20090506
  Serious: Yes (Other)
  Sender: FDA-Public Use
  Company Number: PHHY2008FR26948

PATIENT
  Sex: Male
  Weight: 82 kg

DRUGS (4)
  1. VOLTAREN [Suspect]
     Indication: SPINAL DISORDER
     Dosage: 50 MG, UNK
     Dates: end: 20080101
  2. VOLTAREN [Suspect]
     Indication: LUMBAR SPINAL STENOSIS
  3. VOLTAREN [Suspect]
     Indication: SPINAL DISORDER
     Dosage: 100 MG, UNK
  4. VOLTAREN [Suspect]
     Dosage: 75 MG, UNK

REACTIONS (4)
  - BIOPSY KIDNEY [None]
  - GLOMERULONEPHRITIS [None]
  - NEPHROTIC SYNDROME [None]
  - PROTEINURIA [None]
